FAERS Safety Report 4506372-1 (Version None)
Quarter: 2004Q4

REPORT INFORMATION
  Report Type: 
  Country: None (occurrence: None)
  Receive Date: 20041025
  Receipt Date: 20040323
  Transmission Date: 20050328
  Serious: Yes (Other)
  Sender: FDA-Public Use
  Company Number: US-JNJFOC-20030602784

PATIENT
  Age: 34 Year
  Sex: Female
  Weight: 64.6376 kg

DRUGS (11)
  1. REMICADE [Suspect]
     Indication: CROHN'S DISEASE
     Dosage: , 1 IN 1 TOTAL, INTRAVENOUS; 5 MG/KG, 1 IN 1 TOTAL, INTRAVENOUS
     Route: 042
     Dates: start: 20021030, end: 20021030
  2. REMICADE [Suspect]
     Indication: CROHN'S DISEASE
     Dosage: , 1 IN 1 TOTAL, INTRAVENOUS; 5 MG/KG, 1 IN 1 TOTAL, INTRAVENOUS
     Route: 042
     Dates: start: 19991108
  3. REMICADE [Suspect]
     Indication: CROHN'S DISEASE
     Dosage: , 1 IN 1 TOTAL, INTRAVENOUS; 5 MG/KG, 1 IN 1 TOTAL, INTRAVENOUS
     Route: 042
     Dates: start: 20000212
  4. REMICADE [Suspect]
     Indication: CROHN'S DISEASE
     Dosage: , 1 IN 1 TOTAL, INTRAVENOUS; 5 MG/KG, 1 IN 1 TOTAL, INTRAVENOUS
     Route: 042
     Dates: start: 20000602
  5. REMICADE [Suspect]
     Indication: CROHN'S DISEASE
     Dosage: , 1 IN 1 TOTAL, INTRAVENOUS; 5 MG/KG, 1 IN 1 TOTAL, INTRAVENOUS
     Route: 042
     Dates: start: 20000906
  6. REMICADE [Suspect]
     Indication: CROHN'S DISEASE
     Dosage: , 1 IN 1 TOTAL, INTRAVENOUS; 5 MG/KG, 1 IN 1 TOTAL, INTRAVENOUS
     Route: 042
     Dates: start: 20021015
  7. TYLENOL [Concomitant]
  8. BENADRYL [Concomitant]
  9. SOLU-CORTEF [Concomitant]
  10. PENTASA [Concomitant]
  11. LEVOXYL [Concomitant]

REACTIONS (2)
  - INFUSION RELATED REACTION [None]
  - UPPER RESPIRATORY TRACT INFECTION [None]
